FAERS Safety Report 6984999-5 (Version None)
Quarter: 2010Q3

REPORT INFORMATION
  Report Type: 
  Country: None (occurrence: None)
  Receive Date: 20100915
  Receipt Date: 20100901
  Transmission Date: 20110219
  Serious: Yes (Hospitalization)
  Sender: FDA-Public Use
  Company Number: PHHY2010US54710

PATIENT

DRUGS (1)
  1. GLEEVEC [Suspect]
     Indication: CHRONIC MYELOID LEUKAEMIA
     Dosage: 400 MG DAILY
     Route: 048
     Dates: start: 20081215

REACTIONS (5)
  - CARDIAC FAILURE CONGESTIVE [None]
  - FLUID RETENTION [None]
  - HEART VALVE INCOMPETENCE [None]
  - OCULAR HYPERAEMIA [None]
  - OEDEMA [None]
